FAERS Safety Report 23933267 (Version 2)
Quarter: 2025Q2

REPORT INFORMATION
  Report Type: Spontaneous
  Country: US (occurrence: US)
  Receive Date: 20240603
  Receipt Date: 20250602
  Transmission Date: 20250717
  Serious: No
  Sender: PFIZER
  Company Number: US-PFIZER INC-PV202400071796

PATIENT
  Age: 45 Year
  Sex: Female

DRUGS (6)
  1. IBRANCE [Suspect]
     Active Substance: PALBOCICLIB
     Indication: Breast cancer female
     Route: 048
     Dates: start: 20221214
  2. OMEPRAZOLE [Concomitant]
     Active Substance: OMEPRAZOLE
  3. FULVESTRANT [Concomitant]
     Active Substance: FULVESTRANT
  4. GOSERELIN [Concomitant]
     Active Substance: GOSERELIN
  5. ZOMETA [Concomitant]
     Active Substance: ZOLEDRONIC ACID
  6. ACETAMINOPHEN [Concomitant]
     Active Substance: ACETAMINOPHEN

REACTIONS (2)
  - Rash [Not Recovered/Not Resolved]
  - Eczema [Not Recovered/Not Resolved]

NARRATIVE: CASE EVENT DATE: 20240101
